FAERS Safety Report 20775909 (Version 2)
Quarter: 2022Q3

REPORT INFORMATION
  Report Type: Report from Study
  Country: US (occurrence: US)
  Receive Date: 20220502
  Receipt Date: 20220721
  Transmission Date: 20221026
  Serious: Yes (Other)
  Sender: FDA-Public Use
  Company Number: US-BAYER-2022A059687

PATIENT
  Age: 59 Year
  Sex: Female

DRUGS (6)
  1. GADOBUTROL [Suspect]
     Active Substance: GADOBUTROL
     Indication: Pancreatic cyst
     Dosage: UNK, ONCE
  2. GADOBUTROL [Suspect]
     Active Substance: GADOBUTROL
     Indication: Chest pain
  3. GADOBUTROL [Suspect]
     Active Substance: GADOBUTROL
     Indication: Neck pain
  4. MULTIHANCE [Suspect]
     Active Substance: GADOBENATE DIMEGLUMINE
  5. ALPRAZOLAM [Concomitant]
     Active Substance: ALPRAZOLAM
  6. VITAMIN B12 [Concomitant]
     Active Substance: CYANOCOBALAMIN

REACTIONS (4)
  - Gadolinium deposition disease [None]
  - Mitochondrial toxicity [None]
  - Nontherapeutic agent urine positive [None]
  - Cytokine increased [None]
